FAERS Safety Report 6311774-7 (Version None)
Quarter: 2009Q3

REPORT INFORMATION
  Report Type: 
  Country: None (occurrence: None)
  Receive Date: 20090813
  Receipt Date: 20090813
  Transmission Date: 20100115
  Serious: Yes (Other)
  Sender: FDA-Public Use
  Company Number: None

PATIENT
  Sex: Female
  Weight: 120.6568 kg

DRUGS (2)
  1. SYNTHROID [Suspect]
     Indication: HYPOTHYROIDISM
     Dosage: 200 MCG 1 Q DAY PO
     Route: 048
     Dates: start: 20040831
  2. SYNTHROID [Suspect]
     Indication: THYROID CANCER
     Dosage: 200 MCG 1 Q DAY PO
     Route: 048
     Dates: start: 20040831

REACTIONS (2)
  - HYPERPHAGIA [None]
  - PRODUCT SUBSTITUTION ISSUE [None]
